FAERS Safety Report 6266637-2 (Version None)
Quarter: 2009Q3

REPORT INFORMATION
  Report Type: 
  Country: None (occurrence: None)
  Receive Date: 20090710
  Receipt Date: 20090630
  Transmission Date: 20100115
  Serious: Yes (Life-Threatening, Other)
  Sender: FDA-Public Use
  Company Number: 09US002318

PATIENT
  Age: 31 Year
  Sex: Female

DRUGS (1)
  1. ACETAMINOPHEN [Suspect]
     Indication: SUICIDE ATTEMPT
     Dosage: 32500-39000 MG, (50-60 TABLETS) SINGLE, ORAL
     Route: 048

REACTIONS (7)
  - BIPOLAR II DISORDER [None]
  - DISTURBANCE IN SEXUAL AROUSAL [None]
  - FATIGUE [None]
  - FLIGHT OF IDEAS [None]
  - INTENTIONAL OVERDOSE [None]
  - SPEECH DISORDER [None]
  - SUICIDE ATTEMPT [None]
